FAERS Safety Report 8384507-0 (Version None)
Quarter: 2012Q2

REPORT INFORMATION
  Report Type: 
  Country: None (occurrence: None)
  Receive Date: 20120524
  Receipt Date: 20120515
  Transmission Date: 20120825
  Serious: Yes (Other)
  Sender: FDA-Public Use
  Company Number: US-ELI_LILLY_AND_COMPANY-US201205006614

PATIENT
  Sex: Male

DRUGS (6)
  1. EFFIENT [Suspect]
     Dosage: 10 MG, UNK
     Dates: start: 20120424
  2. VITAMIN B-12 [Concomitant]
  3. POTASSIUM CHLORIDE [Concomitant]
  4. VITAMINS NOS [Concomitant]
  5. VITAMIN D [Concomitant]
  6. EFFIENT [Suspect]
     Indication: STENT PLACEMENT
     Dosage: 60 MG, SINGLE LOADING DOSE

REACTIONS (1)
  - THROMBOSIS IN DEVICE [None]
